FAERS Safety Report 10178389 (Version 1)
Quarter: 2014Q2

REPORT INFORMATION
  Report Type: Spontaneous
  Country: US (occurrence: None)
  Receive Date: 20140516
  Receipt Date: 20140516
  Transmission Date: 20141212
  Serious: Yes (Other)
  Sender: FDA-Public Use
  Company Number: None

PATIENT
  Age: 57 Year
  Sex: Female
  Weight: 53.98 kg

DRUGS (1)
  1. SIMPONI 50MG [Suspect]
     Indication: RHEUMATOID ARTHRITIS
     Dosage: SUBCUTANEOUS  INJECTABLE  EVERY MONTH
     Route: 058
     Dates: start: 20120209

REACTIONS (3)
  - Fatigue [None]
  - Irritability [None]
  - Depression [None]
